FAERS Safety Report 10272898 (Version 1)
Quarter: 2014Q2

REPORT INFORMATION
  Report Type: Spontaneous
  Country: US (occurrence: None)
  Receive Date: 20140627
  Receipt Date: 20140627
  Transmission Date: 20141212
  Serious: Yes (Life-Threatening)
  Sender: FDA-Public Use
  Company Number: None

PATIENT
  Age: 68 Year
  Sex: Male
  Weight: 108 kg

DRUGS (12)
  1. APIXABAN [Suspect]
     Indication: ATRIAL FIBRILLATION
     Route: 048
  2. ATORVASTATIN [Concomitant]
  3. CALCIUM ACETATE [Concomitant]
  4. CARVEDILOL [Concomitant]
  5. ESCITALOPRAM [Concomitant]
  6. FAMOTIDINE [Concomitant]
  7. ADVAIR [Concomitant]
  8. FUROSEMIDE [Concomitant]
  9. LEVEMIR [Concomitant]
  10. HUMALOG [Concomitant]
  11. BIDIL [Concomitant]
  12. SPIRIVA [Concomitant]

REACTIONS (2)
  - Haemoglobin decreased [None]
  - Upper gastrointestinal haemorrhage [None]
